FAERS Safety Report 8880348 (Version 1)
Quarter: 2012Q4

REPORT INFORMATION
  Report Type: 
  Country: FR (occurrence: FR)
  Receive Date: 20121031
  Receipt Date: 20121031
  Transmission Date: 20130627
  Serious: Yes (Other)
  Sender: FDA-Public Use
  Company Number: PHHY2012FR097849

PATIENT
  Age: 44 Year
  Sex: Female

DRUGS (2)
  1. PREDNISOLONE [Suspect]
     Indication: EAR INFECTION
     Dosage: 60 mg, UNK
     Route: 048
     Dates: start: 20121023
  2. AMOXICILLIN W/CLAVULANIC ACID TEVA [Suspect]
     Indication: EAR INFECTION
     Dosage: 1 g, UNK
     Route: 048
     Dates: start: 20121023, end: 20121023

REACTIONS (4)
  - Anaphylactic shock [Recovering/Resolving]
  - Tachycardia [Recovering/Resolving]
  - Erythema [Recovering/Resolving]
  - Blood pressure decreased [Recovering/Resolving]
